FAERS Safety Report 6903954-4 (Version None)
Quarter: 2010Q3

REPORT INFORMATION
  Report Type: 
  Country: None (occurrence: None)
  Receive Date: 20100804
  Receipt Date: 20090217
  Transmission Date: 20110219
  Serious: No
  Sender: FDA-Public Use
  Company Number: US-PFIZER INC-2009172792

PATIENT
  Sex: Female
  Weight: 71.7 kg

DRUGS (9)
  1. LYRICA [Suspect]
     Indication: PERIPHERAL NERVE INJURY
     Dosage: 200 MG, 2X/DAY
  2. VALSARTAN [Concomitant]
     Indication: HYPERTENSION
     Dosage: UNK
  3. NORVASC [Concomitant]
     Indication: HYPERTENSION
     Dosage: UNK
  4. ANTIHYPERTENSIVES [Concomitant]
     Indication: HYPERTENSION
     Dosage: UNK
  5. ACCOLATE [Concomitant]
     Indication: ASTHMA
     Dosage: UNK
  6. MONTELUKAST SODIUM [Concomitant]
     Indication: ASTHMA
     Dosage: UNK
  7. ALL OTHER THERAPEUTIC PRODUCTS [Concomitant]
     Dosage: UNK
  8. TRAMADOL [Concomitant]
     Dosage: UNK
  9. LUNESTA [Concomitant]
     Dosage: UNK

REACTIONS (6)
  - ASTHENIA [None]
  - FATIGUE [None]
  - LOCAL SWELLING [None]
  - MALAISE [None]
  - NECK PAIN [None]
  - SINUSITIS [None]
